FAERS Safety Report 18777263 (Version 1)
Quarter: 2021Q1

REPORT INFORMATION
  Report Type: Spontaneous
  Country: CA (occurrence: CA)
  Receive Date: 20210122
  Receipt Date: 20210122
  Transmission Date: 20210419
  Serious: Yes (Other)
  Sender: FDA-Public Use
  Company Number: CA-PURDUE-USA-2020-0197045

PATIENT
  Sex: Female

DRUGS (3)
  1. OXYCONTIN [Suspect]
     Active Substance: OXYCODONE HYDROCHLORIDE
     Indication: PRODUCT USED FOR UNKNOWN INDICATION
     Dosage: UNK
     Route: 048
  2. MS CONTIN [Suspect]
     Active Substance: MORPHINE SULFATE
     Indication: PRODUCT USED FOR UNKNOWN INDICATION
     Dosage: UNK
     Route: 048
  3. DILAUDID [Suspect]
     Active Substance: HYDROMORPHONE HYDROCHLORIDE
     Indication: PRODUCT USED FOR UNKNOWN INDICATION
     Dosage: UNK
     Route: 048

REACTIONS (14)
  - Cognitive disorder [Unknown]
  - Learning disability [Unknown]
  - Multiple congenital abnormalities [Unknown]
  - Weight abnormal [Unknown]
  - Drug dependence [Unknown]
  - Cardiac disorder [Unknown]
  - Anxiety [Unknown]
  - General physical health deterioration [Unknown]
  - Sarcoidosis [Unknown]
  - Depression [Unknown]
  - Drug withdrawal syndrome [Unknown]
  - Immune system disorder [Unknown]
  - Addison^s disease [Unknown]
  - Developmental delay [Unknown]
